FAERS Safety Report 6425409-6 (Version None)
Quarter: 2009Q4

REPORT INFORMATION
  Report Type: 
  Country: None (occurrence: None)
  Receive Date: 20091029
  Receipt Date: 20090320
  Transmission Date: 20100525
  Serious: Yes (Other)
  Sender: FDA-Public Use
  Company Number: 57846

PATIENT
  Sex: Female

DRUGS (9)
  1. BLEOMYCIN SULFATE [Suspect]
     Indication: PSEUDOLYMPHOMA
     Dosage: 10 UNITS/M2 (15 UNITS) EVERY OTHER WEEK 11 DOS
     Dates: start: 20081008
  2. NITROGLYCERIN SL [Concomitant]
  3. ATENOLOL [Concomitant]
  4. DOXORUBICIN HCL [Concomitant]
  5. PRILOSEC [Concomitant]
  6. ELAVIL [Concomitant]
  7. ATIVAN [Concomitant]
  8. SYNTHROID [Concomitant]
  9. FLEXERIL [Concomitant]

REACTIONS (2)
  - PNEUMONITIS [None]
  - SKIN TOXICITY [None]
